FAERS Safety Report 11892367 (Version 2)
Quarter: 2016Q1

REPORT INFORMATION
  Report Type: Spontaneous
  Country: US (occurrence: US)
  Receive Date: 20160106
  Receipt Date: 20160125
  Transmission Date: 20160526
  Serious: Yes (Other)
  Sender: FDA-Public Use
  Company Number: US-JNJFOC-20160101424

PATIENT
  Age: 25 Year
  Sex: Male
  Weight: 65.32 kg

DRUGS (3)
  1. REMICADE [Suspect]
     Active Substance: INFLIXIMAB
     Indication: COLITIS ULCERATIVE
     Route: 042
     Dates: start: 20131104, end: 20151103
  2. MESALAMINE. [Concomitant]
     Active Substance: MESALAMINE
     Indication: SELF-MEDICATION
     Route: 065
     Dates: start: 20151231
  3. PREDNISONE. [Concomitant]
     Active Substance: PREDNISONE
     Indication: SELF-MEDICATION
     Route: 065
     Dates: start: 20151231

REACTIONS (1)
  - Electrocardiogram ST segment elevation [Recovered/Resolved]

NARRATIVE: CASE EVENT DATE: 20151231
